FAERS Safety Report 7589743-9 (Version None)
Quarter: 2011Q3

REPORT INFORMATION
  Report Type: 
  Country: None (occurrence: None)
  Receive Date: 20110705
  Receipt Date: 20110627
  Transmission Date: 20111222
  Serious: Yes (Hospitalization, Other)
  Sender: FDA-Public Use
  Company Number: US-ABBOTT-11P-163-0716723-00

PATIENT
  Sex: Male
  Weight: 125.3 kg

DRUGS (8)
  1. FERROUS SULFATE TAB [Concomitant]
     Indication: PRODUCT USED FOR UNKNOWN INDICATION
  2. IMURAN [Concomitant]
     Indication: PRODUCT USED FOR UNKNOWN INDICATION
  3. HUMIRA [Suspect]
     Route: 058
     Dates: start: 20110501
  4. HUMIRA [Suspect]
     Indication: CROHN'S DISEASE
     Route: 050
     Dates: start: 20091201, end: 20101201
  5. LORATADINE [Concomitant]
     Indication: PRODUCT USED FOR UNKNOWN INDICATION
  6. HUMIRA [Suspect]
     Route: 058
     Dates: start: 20101201, end: 20110101
  7. TYLENOL-500 [Concomitant]
     Indication: PRODUCT USED FOR UNKNOWN INDICATION
  8. GABAPENTIN [Concomitant]
     Indication: PRODUCT USED FOR UNKNOWN INDICATION

REACTIONS (8)
  - ASTHENIA [None]
  - WHITE BLOOD CELL COUNT INCREASED [None]
  - DRUG INEFFECTIVE [None]
  - FALL [None]
  - PROCEDURAL SITE REACTION [None]
  - INFECTION [None]
  - FAECAL INCONTINENCE [None]
  - CROHN'S DISEASE [None]
